FAERS Safety Report 23468170 (Version 1)
Quarter: 2024Q1

REPORT INFORMATION
  Report Type: Spontaneous
  Country: US (occurrence: US)
  Receive Date: 20240201
  Receipt Date: 20240201
  Transmission Date: 20240410
  Serious: Yes (Other)
  Sender: FDA-Public Use
  Company Number: US-TEVA-VS-3147538

PATIENT
  Sex: Female

DRUGS (6)
  1. NEFAZODONE HYDROCHLORIDE [Suspect]
     Active Substance: NEFAZODONE HYDROCHLORIDE
     Indication: Depression
     Dosage: TAKING CLOSE TO 150, OVER 25 YEARS
     Route: 048
     Dates: start: 1999
  2. CORTICOSTEROID NOS [Concomitant]
     Active Substance: CORTICOSTEROID NOS
     Route: 055
  3. LAMOTRIGINE [Suspect]
     Active Substance: LAMOTRIGINE
     Indication: Product used for unknown indication
     Route: 065
  4. KENALOG [Suspect]
     Active Substance: TRIAMCINOLONE ACETONIDE
     Indication: Product used for unknown indication
     Dosage: VERY LARGE DOSE OF FLUOROSCOPICALLY GUIDED KENALOG INTO HER LOWER SPINE
     Route: 065
     Dates: start: 2011
  5. FLUTICASONE [Suspect]
     Active Substance: FLUTICASONE
     Indication: Hypersensitivity
     Route: 065
  6. FLONASE [Suspect]
     Active Substance: FLUTICASONE PROPIONATE
     Indication: Hypersensitivity
     Route: 065

REACTIONS (23)
  - Asthma [Not Recovered/Not Resolved]
  - Head discomfort [Unknown]
  - Bipolar II disorder [Unknown]
  - Drug ineffective [Unknown]
  - Adverse event [Unknown]
  - Feeling abnormal [Unknown]
  - Drug intolerance [Unknown]
  - Menstrual disorder [Unknown]
  - Insomnia [Unknown]
  - Injection site necrosis [Unknown]
  - Intentional product misuse [Unknown]
  - Adverse drug reaction [Unknown]
  - Anger [Unknown]
  - Heavy menstrual bleeding [Unknown]
  - Sitting disability [Unknown]
  - Adverse drug reaction [Unknown]
  - Thinking abnormal [Unknown]
  - Hypotension [Unknown]
  - Illness [Unknown]
  - Irritability [Unknown]
  - Drug hypersensitivity [Unknown]
  - Tachycardia [Unknown]
  - Drug interaction [Unknown]

NARRATIVE: CASE EVENT DATE: 20110101
